FAERS Safety Report 21050978 (Version 2)
Quarter: 2023Q1

REPORT INFORMATION
  Report Type: Spontaneous
  Country: FR (occurrence: FR)
  Receive Date: 20220707
  Receipt Date: 20230207
  Transmission Date: 20230417
  Serious: Yes (Other)
  Sender: FDA-Public Use
  Company Number: FR-CELLTRION INC.-2022FR010424

PATIENT

DRUGS (9)
  1. RITUXIMAB [Suspect]
     Active Substance: RITUXIMAB
     Indication: Renal transplant
     Dosage: 375 MG/M2, QD
     Route: 065
  2. RITUXIMAB [Suspect]
     Active Substance: RITUXIMAB
     Indication: Epstein-Barr virus antibody positive
     Dosage: 375 MG/M2 AT D0
  3. RITUXIMAB [Suspect]
     Active Substance: RITUXIMAB
     Indication: Epstein-Barr virus infection
     Dosage: 375 MG/M2
  4. RITUXIMAB [Suspect]
     Active Substance: RITUXIMAB
     Dosage: 375 MG/M2
  5. RITUXIMAB [Suspect]
     Active Substance: RITUXIMAB
     Dosage: RTX BEFORE TX (DOSES, EXCEPT INDUCTION) : 2
  6. VALGANCICLOVIR [Suspect]
     Active Substance: VALGANCICLOVIR
     Indication: Antiviral prophylaxis
  7. ACETAMINOPHEN [Concomitant]
     Active Substance: ACETAMINOPHEN
     Indication: Premedication
  8. DEXCHLORPHENIRAMINE [Concomitant]
     Active Substance: DEXCHLORPHENIRAMINE
     Indication: Premedication
  9. PREDNISONE [Concomitant]
     Active Substance: PREDNISONE
     Indication: Premedication

REACTIONS (3)
  - Neutropenia [Unknown]
  - Product use issue [Unknown]
  - Off label use [Unknown]
